FAERS Safety Report 8539558-X (Version None)
Quarter: 2012Q3

REPORT INFORMATION
  Report Type: 
  Country: None (occurrence: None)
  Receive Date: 20120726
  Receipt Date: 20120720
  Transmission Date: 20120928
  Serious: Yes (Death, Disabling, Other)
  Sender: FDA-Public Use
  Company Number: JP-ELI_LILLY_AND_COMPANY-JP201206004923

PATIENT
  Sex: Female

DRUGS (1)
  1. GEMCITABINE HYDROCHLORIDE [Suspect]
     Indication: ADENOCARCINOMA PANCREAS
     Dosage: 1000 MG/M2, UNK
     Route: 042
     Dates: start: 20091005, end: 20091008

REACTIONS (5)
  - NEOPLASM PROGRESSION [None]
  - TROUSSEAU'S SYNDROME [None]
  - BLOOD GLUCOSE INCREASED [None]
  - CEREBRAL ARTERY OCCLUSION [None]
  - PLATELET COUNT DECREASED [None]
